FAERS Safety Report 8853376 (Version 1)
Quarter: 2012Q4

REPORT INFORMATION
  Report Type: Report from Study
  Country: US (occurrence: US)
  Receive Date: 20121022
  Receipt Date: 20121022
  Transmission Date: 20130627
  Serious: Yes (Death, Hospitalization)
  Sender: FDA-Public Use
  Company Number: US-GLAXOSMITHKLINE-Z0008499B

PATIENT
  Age: 63 Year
  Sex: Female
  Weight: 58 kg

DRUGS (10)
  1. OFATUMUMAB [Suspect]
     Indication: LYMPHOMA
     Route: 042
     Dates: start: 20110120
  2. DEXAMETHASONE [Suspect]
     Indication: LYMPHOMA
     Route: 042
     Dates: start: 20110120
  3. CISPLATIN [Suspect]
     Indication: LYMPHOMA
     Dosage: 100MGM2 Per day
     Route: 042
     Dates: start: 20110120
  4. CYTARABINE [Suspect]
     Indication: LYMPHOMA
     Route: 042
     Dates: start: 20110122
  5. ZEVALIN [Concomitant]
     Dates: start: 20110331
  6. ZEVALIN [Concomitant]
     Dates: start: 20110407
  7. CARMUSTINE [Concomitant]
     Dates: start: 20110414
  8. ETOPOSIDE [Concomitant]
     Dates: start: 20110415, end: 20110418
  9. CYTARABINE [Concomitant]
     Dates: start: 20110415, end: 20110418
  10. MELPHALAN [Concomitant]
     Dates: start: 20110419

REACTIONS (4)
  - Renal failure acute [Fatal]
  - Respiratory failure [Fatal]
  - Septic shock [Fatal]
  - Cytomegalovirus viraemia [Fatal]
